FAERS Safety Report 4939295-4 (Version None)
Quarter: 2006Q1

REPORT INFORMATION
  Report Type: 
  Country: None (occurrence: None)
  Receive Date: 20060306
  Receipt Date: 20060223
  Transmission Date: 20060701
  Serious: Yes (Death, Hospitalization)
  Sender: FDA-Public Use
  Company Number: 2006-02-1595

PATIENT
  Age: 86 Year
  Sex: Male

DRUGS (1)
  1. BETAMETHASONE SODIUM PHOSPHATE [Suspect]
     Dosage: UNKNOWN INTRAMUSCULAR
     Route: 030
     Dates: start: 20060222, end: 20060222

REACTIONS (1)
  - SYNCOPE [None]
